FAERS Safety Report 9614215 (Version 1)
Quarter: 2013Q4

REPORT INFORMATION
  Report Type: Spontaneous
  Country: PH (occurrence: PH)
  Receive Date: 20131011
  Receipt Date: 20131011
  Transmission Date: 20140711
  Serious: Yes (Other)
  Sender: FDA-Public Use
  Company Number: PH-MERCK-1310PHL003430

PATIENT
  Sex: Male

DRUGS (3)
  1. HYZAAR [Suspect]
     Indication: BLOOD PRESSURE ABNORMAL
     Dosage: ONE TABLET ONCE A DAY
     Route: 048
  2. SIMVASTATIN [Suspect]
     Route: 048
  3. DIGOXIN [Suspect]

REACTIONS (3)
  - Cerebrovascular accident [Recovering/Resolving]
  - Cardiac disorder [Recovering/Resolving]
  - Stress [Recovering/Resolving]
